FAERS Safety Report 10905444 (Version 1)
Quarter: 2015Q1

REPORT INFORMATION
  Report Type: Spontaneous
  Country: US (occurrence: None)
  Receive Date: 20150309
  Receipt Date: 20150309
  Transmission Date: 20150721
  Serious: No
  Sender: FDA-Public Use
  Company Number: None

PATIENT
  Age: 35 Year
  Sex: Female
  Weight: 105.24 kg

DRUGS (5)
  1. INVOKANA [Concomitant]
     Active Substance: CANAGLIFLOZIN
  2. MONISTAT 3 [Suspect]
     Active Substance: MICONAZOLE NITRATE
     Indication: FUNGAL INFECTION
     Dosage: 1 CAPSULE
     Route: 067
     Dates: start: 20150202, end: 20150204
  3. LO LOESTRIN FE [Concomitant]
     Active Substance: ETHINYL ESTRADIOL\NORETHINDRONE ACETATE
  4. LISINOPRIL. [Concomitant]
     Active Substance: LISINOPRIL
  5. CLARITIN [Concomitant]
     Active Substance: LORATADINE

REACTIONS (4)
  - Application site erythema [None]
  - Application site pain [None]
  - Application site pruritus [None]
  - Application site swelling [None]

NARRATIVE: CASE EVENT DATE: 20150203
